FAERS Safety Report 9881329 (Version 2)
Quarter: 2014Q1

REPORT INFORMATION
  Report Type: Spontaneous
  Country: JP (occurrence: JP)
  Receive Date: 20140207
  Receipt Date: 20140207
  Transmission Date: 20141002
  Serious: Yes (Hospitalization, Other)
  Sender: FDA-Public Use
  Company Number: JP-PFIZER INC-2014024265

PATIENT
  Age: 66 Year
  Sex: Male
  Weight: 57 kg

DRUGS (27)
  1. CAMPTO [Suspect]
     Indication: RECTAL CANCER
     Dosage: 304.9 MG, 1X/DAY 304.9 MG/BODY (180 MG/M2)
     Route: 041
     Dates: start: 20131016, end: 20131016
  2. CAMPTO [Suspect]
     Dosage: 254.1 MG, 1X/DAY 254.1 MG/BODY (150 MG/M2)
     Route: 041
     Dates: start: 20131107, end: 20131107
  3. CAMPTO [Suspect]
     Dosage: 254.1 MG, 1X/DAY
     Route: 041
     Dates: start: 20131205, end: 20131205
  4. CAMPTO [Suspect]
     Dosage: 254.1 MG, 1X/DAY
     Route: 041
     Dates: start: 20131219, end: 20131219
  5. CAMPTO [Suspect]
     Dosage: 254.1 MG, 1X/DAY
     Route: 041
     Dates: start: 20140109, end: 20140109
  6. LEVOFOLINATE CALCIUM [Suspect]
     Indication: RECTAL CANCER
     Dosage: 338.8 MG, 1X/DAY 338.8 MG/BODY (200 MG/M2)
     Route: 041
     Dates: start: 20131016, end: 20131016
  7. LEVOFOLINATE CALCIUM [Suspect]
     Dosage: 338.8 MG, 1X/DAY
     Route: 041
     Dates: start: 20131107, end: 20131107
  8. LEVOFOLINATE CALCIUM [Suspect]
     Dosage: 338.8 MG, 1X/DAY
     Route: 041
     Dates: start: 20131205, end: 20131205
  9. LEVOFOLINATE CALCIUM [Suspect]
     Dosage: 338.8 MG, 1X/DAY
     Route: 041
     Dates: start: 20131219, end: 20131219
  10. LEVOFOLINATE CALCIUM [Suspect]
     Dosage: 338.8 MG, 1X/DAY
     Route: 041
     Dates: start: 20140109, end: 20140109
  11. 5-FU [Suspect]
     Indication: RECTAL CANCER
     Dosage: 677.6 MG, 1X/DAY 677.6 MG/BODY (400 MG/M2)
     Route: 040
     Dates: start: 20131016, end: 20131016
  12. 5-FU [Suspect]
     Dosage: 4065.6 MG, ALTERNATE DAY (ONCE IN 2DAYS) 4065.6 MG/BODY/D1-2 (2400 MG/M2/D1-2)
     Route: 041
     Dates: start: 20131016, end: 20131016
  13. 5-FU [Suspect]
     Dosage: 677.6 MG, 1X/DAY
     Route: 040
     Dates: start: 20131107, end: 20131107
  14. 5-FU [Suspect]
     Dosage: 4065.6 MG, ALTERNATE DAY (ONCE IN 2DAYS)
     Route: 041
     Dates: start: 20131107, end: 20131107
  15. 5-FU [Suspect]
     Dosage: 542.1 MG, 1X/DAY 542.1 MG/BODY (320 MG/M2)
     Route: 040
     Dates: start: 20131205, end: 20131205
  16. 5-FU [Suspect]
     Dosage: 3388 MG, ALTERNATE DAY (ONCE IN 2DAYS) 3388 MG/BODY/D1-2 (2000 MG/M2/D1-2)
     Route: 041
     Dates: start: 20131205, end: 20131205
  17. 5-FU [Suspect]
     Dosage: 542.1 MG, 1X/DAY
     Route: 040
     Dates: start: 20131219, end: 20131219
  18. 5-FU [Suspect]
     Dosage: 3388 MG, ALTERNATE DAY (ONCE IN 2DAYS)
     Route: 041
     Dates: start: 20131219, end: 20131219
  19. 5-FU [Suspect]
     Dosage: 542.1 MG, 1X/DAY
     Route: 040
     Dates: start: 20140109, end: 20140109
  20. 5-FU [Suspect]
     Dosage: 3388 MG, ALTERNATE DAY (ONCE IN 2DAYS)
     Route: 041
     Dates: start: 20140109, end: 20140109
  21. AVE0005 [Suspect]
     Indication: RECTAL CANCER
     Dosage: 4 MG/KG, 1X/DAY
     Route: 041
     Dates: start: 20131016, end: 20131016
  22. AVE0005 [Suspect]
     Dosage: 4 MG/KG, 1X/DAY
     Route: 041
     Dates: start: 20131107, end: 20131107
  23. AVE0005 [Suspect]
     Dosage: 4 MG/KG, 1X/DAY
     Route: 041
     Dates: start: 20140109, end: 20140109
  24. AZILVA [Concomitant]
     Dosage: UNK
     Dates: start: 20131115
  25. AMLODIN OD [Concomitant]
     Dosage: UNK
     Dates: start: 20131129
  26. DEXART [Concomitant]
     Dosage: UNK
     Dates: start: 20140114
  27. TAKEPRON [Concomitant]
     Dosage: UNK
     Dates: start: 20140116

REACTIONS (6)
  - Dehydration [Not Recovered/Not Resolved]
  - Decreased appetite [Not Recovered/Not Resolved]
  - Neutropenia [Unknown]
  - Gastric ulcer [Unknown]
  - Hypertension [Unknown]
  - Diarrhoea [Unknown]
